FAERS Safety Report 20191492 (Version 1)
Quarter: 2021Q4

REPORT INFORMATION
  Report Type: Spontaneous
  Country: US (occurrence: US)
  Receive Date: 20211216
  Receipt Date: 20211216
  Transmission Date: 20220303
  Serious: No
  Sender: FDA-Public Use
  Company Number: US-AUROBINDO-AUR-APL-2020-059609

PATIENT
  Age: 58 Year
  Sex: Female
  Weight: 74.84 kg

DRUGS (5)
  1. CITALOPRAM [Suspect]
     Active Substance: CITALOPRAM HYDROBROMIDE
     Indication: Anxiety
     Dosage: 10 MILLIGRAM, DAILY
     Route: 065
  2. FAMOTIDINE [Suspect]
     Active Substance: FAMOTIDINE
     Indication: Gastrooesophageal reflux disease
     Dosage: 40 MILLIGRAM, DAILY
     Route: 065
  3. BUPROPION [Suspect]
     Active Substance: BUPROPION
     Indication: Depression
     Dosage: 300 MILLIGRAM, DAILY
     Route: 065
  4. DOXYCYCLINE HYCLATE [Suspect]
     Active Substance: DOXYCYCLINE HYCLATE
     Indication: Blepharitis
     Dosage: 100 MILLIGRAM, ONCE A DAY
     Route: 065
     Dates: start: 20200930, end: 20201013
  5. PREDNISOLONE [Suspect]
     Active Substance: PREDNISOLONE
     Indication: Meibomian gland dysfunction
     Dosage: 1 GTT DROPS (IN EACH EYE TWICE DAILY)
     Route: 065
     Dates: start: 20200930, end: 20201013

REACTIONS (2)
  - Halo vision [Recovered/Resolved]
  - Vision blurred [Recovered/Resolved]

NARRATIVE: CASE EVENT DATE: 20201007
